FAERS Safety Report 6460444-3 (Version None)
Quarter: 2009Q4

REPORT INFORMATION
  Report Type: 
  Country: None (occurrence: None)
  Receive Date: 20091130
  Receipt Date: 20091120
  Transmission Date: 20100525
  Serious: Yes (Hospitalization)
  Sender: FDA-Public Use
  Company Number: US-ROCHE-670385

PATIENT
  Age: 84 Year
  Sex: Male
  Weight: 78.4 kg

DRUGS (2)
  1. CAPECITABINE [Suspect]
     Indication: PANCREATIC CARCINOMA
     Route: 048
     Dates: start: 20090928, end: 20091008
  2. PANITUMUMAB [Suspect]
     Indication: PANCREATIC CARCINOMA
     Route: 042
     Dates: start: 20090928

REACTIONS (4)
  - CHEST PAIN [None]
  - DUODENAL ULCER [None]
  - NAUSEA [None]
  - VOMITING [None]
